FAERS Safety Report 18199703 (Version 1)
Quarter: 2020Q3

REPORT INFORMATION
  Report Type: Spontaneous
  Country: FR (occurrence: FR)
  Receive Date: 20200826
  Receipt Date: 20200826
  Transmission Date: 20201103
  Serious: Yes (Hospitalization)
  Sender: FDA-Public Use
  Company Number: FR-MYLANLABS-2020M1073144

PATIENT
  Age: 55 Year
  Sex: Female
  Weight: 112 kg

DRUGS (4)
  1. VANCOMYCIN MYLAN [Suspect]
     Active Substance: VANCOMYCIN
     Indication: DERMO-HYPODERMITIS
     Dosage: 4 GRAM, QD
     Route: 041
     Dates: start: 20200624, end: 20200627
  2. PIPERACILLIN AND TAZOBACTAM [Suspect]
     Active Substance: PIPERACILLIN SODIUM\TAZOBACTAM SODIUM
     Indication: DERMO-HYPODERMITIS
     Dosage: 8 GRAM, QD
     Route: 041
     Dates: start: 20200624, end: 20200627
  3. IOMERON [Suspect]
     Active Substance: IOMEPROL
     Indication: PRODUCT USED FOR UNKNOWN INDICATION
     Dosage: UNE AUTRE DOSE ADMINSITR?E LE 26/06/2020
     Route: 042
     Dates: start: 20200623, end: 20200623
  4. DALACINE                           /00166003/ [Suspect]
     Active Substance: CLINDAMYCIN
     Indication: DERMO-HYPODERMITIS
     Dosage: 600 MILLIGRAM, QD
     Route: 041
     Dates: start: 20200624, end: 20200627

REACTIONS (1)
  - Acute generalised exanthematous pustulosis [Recovered/Resolved]

NARRATIVE: CASE EVENT DATE: 20200626
